FAERS Safety Report 5635707-1 (Version None)
Quarter: 2008Q1

REPORT INFORMATION
  Report Type: 
  Country: None (occurrence: None)
  Receive Date: 20080220
  Receipt Date: 20080208
  Transmission Date: 20080703
  Serious: Yes (Life-Threatening)
  Sender: FDA-Public Use
  Company Number: GXKR2008GB01513

PATIENT
  Age: 75 Year
  Sex: Female

DRUGS (2)
  1. SIMVASTATIN [Suspect]
     Indication: HYPERCHOLESTEROLAEMIA
     Dosage: 40 MG, ORAL
     Route: 048
     Dates: start: 20071129, end: 20080110
  2. SLOZEM (DILTIAZEM HYDROCHLORIDE [Concomitant]

REACTIONS (3)
  - BLOOD CREATINE PHOSPHOKINASE INCREASED [None]
  - HYPOTHYROIDISM [None]
  - MYALGIA [None]
